FAERS Safety Report 9196683 (Version 3)
Quarter: 2013Q4

REPORT INFORMATION
  Report Type: Spontaneous
  Country: JP (occurrence: JP)
  Receive Date: 20130328
  Receipt Date: 20131030
  Transmission Date: 20140711
  Serious: Yes (Hospitalization, Other)
  Sender: FDA-Public Use
  Company Number: JP-PFIZER INC-2013072609

PATIENT
  Age: 69 Year
  Sex: Male
  Weight: 76 kg

DRUGS (5)
  1. INLYTA [Suspect]
     Indication: RENAL CELL CARCINOMA
     Dosage: 5 MG, 2X/DAY
     Route: 048
     Dates: start: 20121114, end: 20121227
  2. SELBEX [Concomitant]
     Indication: GASTRITIS
     Dosage: 1.5 G, 3X/DAY
     Route: 048
  3. EURODIN [Concomitant]
     Indication: INSOMNIA
     Dosage: 2 MG, 1X/DAY
     Route: 048
  4. CALTAN [Concomitant]
     Indication: RENAL FAILURE CHRONIC
     Dosage: 4500 MG, 3X/DAY
     Route: 048
  5. LANSOPRAZOLE [Concomitant]
     Indication: GASTRITIS
     Dosage: 15 MG, 1X/DAY
     Route: 048

REACTIONS (2)
  - Encephalopathy [Recovering/Resolving]
  - Blood pressure increased [Recovering/Resolving]
